FAERS Safety Report 8345313-6 (Version None)
Quarter: 2012Q2

REPORT INFORMATION
  Report Type: 
  Country: None (occurrence: None)
  Receive Date: 20120506
  Receipt Date: 20120420
  Transmission Date: 20120825
  Serious: Yes (Hospitalization)
  Sender: FDA-Public Use
  Company Number: AUR-APL-2012-01982

PATIENT
  Age: 8 Year
  Sex: Female

DRUGS (3)
  1. DANAZOL [Concomitant]
  2. LEVOFLOXACIN [Suspect]
     Indication: SINUSITIS
     Dosage: 1000 MG (1000 MG, 1 IN 1 D), ORAL
     Route: 048
     Dates: start: 20120308, end: 20120315
  3. CYCLOSPORINE [Concomitant]

REACTIONS (3)
  - BRAIN OEDEMA [None]
  - VOMITING [None]
  - HEADACHE [None]
